FAERS Safety Report 6978038-X (Version None)
Quarter: 2010Q3

REPORT INFORMATION
  Report Type: 
  Country: None (occurrence: None)
  Receive Date: 20100913
  Receipt Date: 20100903
  Transmission Date: 20110219
  Serious: Yes (Hospitalization, Other)
  Sender: FDA-Public Use
  Company Number: JP-PFIZER INC-2010079147

PATIENT
  Age: 83 Year
  Sex: Male
  Weight: 60 kg

DRUGS (8)
  1. LIPITOR [Suspect]
     Indication: HYPERCHOLESTEROLAEMIA
     Dosage: 10 MG, 1X/DAY
     Route: 048
     Dates: start: 20000808, end: 20100624
  2. CASODEX [Suspect]
     Indication: PROSTATE CANCER
     Dosage: 80 MG, 1X/DAY
     Route: 048
     Dates: start: 20100426
  3. KREMEZIN [Concomitant]
     Dosage: 2 G, 3X/DAY
  4. KREMEZIN [Concomitant]
     Dosage: 2 G, 1X/DAY
  5. ALOSENN [Concomitant]
     Dosage: 0.5 G, 1X/DAY
  6. AZUNOL [Concomitant]
     Dosage: UNK
  7. ALINAMIN [Concomitant]
     Dosage: 50 MG, 2X/DAY
  8. METHYCOBAL [Concomitant]
     Dosage: 500 UG, 2X/DAY

REACTIONS (12)
  - ASTHENIA [None]
  - CARDIAC FAILURE CONGESTIVE [None]
  - DRUG INTERACTION [None]
  - GAIT DISTURBANCE [None]
  - MYALGIA [None]
  - MYOGLOBINURIA [None]
  - PROSTATE CANCER [None]
  - PYREXIA [None]
  - RENAL FAILURE [None]
  - RHABDOMYOLYSIS [None]
  - TRANSIENT ISCHAEMIC ATTACK [None]
  - URINARY TRACT INFECTION [None]
